FAERS Safety Report 6019953-3 (Version None)
Quarter: 2008Q4

REPORT INFORMATION
  Report Type: 
  Country: None (occurrence: None)
  Receive Date: 20081223
  Receipt Date: 20081216
  Transmission Date: 20090506
  Serious: Yes (Hospitalization)
  Sender: FDA-Public Use
  Company Number: APP200801237

PATIENT
  Age: 67 Year
  Sex: Female
  Weight: 68.0396 kg

DRUGS (7)
  1. HEPARIN SODIUM INJECTION [Suspect]
     Indication: THROMBOSIS
     Dosage: 1 ML, 1 IN 12 HR, SUBCUTANEOUS
     Route: 058
     Dates: start: 20081201, end: 20081212
  2. UNSPECIFIED ANTIBIOTICS (CHLORAMPHENICOL) [Concomitant]
  3. POTASSIUM CHLORIDE [Concomitant]
  4. SODIUM BICARBONATE IN PLASTIC CONTAINER [Concomitant]
  5. QUESTRAN [Concomitant]
  6. LEVOTHYROXINE SODIUM [Concomitant]
  7. MAGNESIUM (MAGNESIUM) [Concomitant]

REACTIONS (3)
  - ARTHRALGIA [None]
  - BLOOD URINE PRESENT [None]
  - LOSS OF CONSCIOUSNESS [None]
